FAERS Safety Report 15153584 (Version 1)
Quarter: 2018Q3

REPORT INFORMATION
  Report Type: Spontaneous
  Country: ES (occurrence: ES)
  Receive Date: 20180717
  Receipt Date: 20180717
  Transmission Date: 20181010
  Serious: Yes (Hospitalization)
  Sender: FDA-Public Use
  Company Number: ES-ASTRAZENECA-2018SE89234

PATIENT
  Age: 28 Year
  Sex: Male
  Weight: 83 kg

DRUGS (5)
  1. HIDROXIL B1?B6?B12 [Concomitant]
     Indication: DRUG ABUSER
     Route: 048
     Dates: start: 20170922, end: 20180105
  2. ANTABUS [Suspect]
     Active Substance: DISULFIRAM
     Indication: DRUG ABUSER
     Route: 048
     Dates: start: 20171026, end: 20180105
  3. LISDEXAMFETAMINE [Suspect]
     Active Substance: LISDEXAMFETAMINE
     Indication: ATTENTION DEFICIT/HYPERACTIVITY DISORDER
     Route: 048
     Dates: start: 20171123, end: 20180105
  4. GABAPENTIN. [Suspect]
     Active Substance: GABAPENTIN
     Indication: DRUG ABUSER
     Route: 048
     Dates: start: 20170922, end: 20180105
  5. QUETIAPINE FUMARATE. [Suspect]
     Active Substance: QUETIAPINE FUMARATE
     Indication: DRUG ABUSER
     Route: 048
     Dates: start: 20171025, end: 20180105

REACTIONS (2)
  - Hepatitis [Recovering/Resolving]
  - Hyperbilirubinaemia [Unknown]

NARRATIVE: CASE EVENT DATE: 20180106
